FAERS Safety Report 20795728 (Version 1)
Quarter: 2022Q2

REPORT INFORMATION
  Report Type: Report from Study
  Country: CN (occurrence: CN)
  Receive Date: 20220506
  Receipt Date: 20220506
  Transmission Date: 20220721
  Serious: Yes (Other)
  Sender: FDA-Public Use
  Company Number: CN-TAKEDA-2022TUS029296

PATIENT
  Age: 35 Year
  Sex: Male

DRUGS (6)
  1. ADVATE [Suspect]
     Active Substance: ANTIHEMOPHILIC FACTOR, HUMAN RECOMBINANT
     Indication: Factor VIII deficiency
     Dosage: 750 INTERNATIONAL UNIT, 2/WEEK
     Route: 042
     Dates: start: 2020
  2. ADVATE [Suspect]
     Active Substance: ANTIHEMOPHILIC FACTOR, HUMAN RECOMBINANT
     Indication: Factor VIII deficiency
     Dosage: 750 INTERNATIONAL UNIT, 2/WEEK
     Route: 042
     Dates: start: 2020
  3. ADVATE [Suspect]
     Active Substance: ANTIHEMOPHILIC FACTOR, HUMAN RECOMBINANT
     Indication: Factor VIII deficiency
     Dosage: 750 INTERNATIONAL UNIT, 2/WEEK
     Route: 042
     Dates: start: 2020
  4. ADVATE [Suspect]
     Active Substance: ANTIHEMOPHILIC FACTOR, HUMAN RECOMBINANT
     Dosage: 5000 INTERNATIONAL UNIT, QD
     Route: 065
  5. ADVATE [Suspect]
     Active Substance: ANTIHEMOPHILIC FACTOR, HUMAN RECOMBINANT
     Dosage: 5000 INTERNATIONAL UNIT, QD
     Route: 065
  6. ADVATE [Suspect]
     Active Substance: ANTIHEMOPHILIC FACTOR, HUMAN RECOMBINANT
     Dosage: 5000 INTERNATIONAL UNIT, QD
     Route: 065

REACTIONS (5)
  - Coma [Unknown]
  - Nephrolithiasis [Unknown]
  - Dizziness [Unknown]
  - Fall [Unknown]
  - Pain [Unknown]

NARRATIVE: CASE EVENT DATE: 20220423
